FAERS Safety Report 10513823 (Version 6)
Quarter: 2015Q3

REPORT INFORMATION
  Report Type: Report from Study
  Country: US (occurrence: US)
  Receive Date: 20141013
  Receipt Date: 20150915
  Transmission Date: 20151125
  Serious: Yes (Hospitalization, Other)
  Sender: FDA-Public Use
  Company Number: US-BAYER-2014-074455

PATIENT
  Age: 73 Year
  Sex: Female
  Weight: 59.41 kg

DRUGS (14)
  1. ADEMPAS [Suspect]
     Active Substance: RIOCIGUAT
     Indication: PULMONARY ARTERIAL HYPERTENSION
     Dosage: 1 MG, TID
     Route: 048
     Dates: start: 20140512
  2. ADEMPAS [Suspect]
     Active Substance: RIOCIGUAT
     Indication: PULMONARY ARTERIAL HYPERTENSION
     Dosage: 2.5 MG, TID
     Route: 048
  3. ADEMPAS [Suspect]
     Active Substance: RIOCIGUAT
     Indication: PULMONARY ARTERIAL HYPERTENSION
     Dosage: 2.5 MG, TID
     Route: 048
     Dates: start: 20140508
  4. ADEMPAS [Suspect]
     Active Substance: RIOCIGUAT
     Indication: PULMONARY ARTERIAL HYPERTENSION
     Dosage: 0.5 MG, TID
     Route: 048
     Dates: start: 20140508
  5. ADEMPAS [Suspect]
     Active Substance: RIOCIGUAT
     Indication: PULMONARY ARTERIAL HYPERTENSION
     Dosage: 2.5 MG, TID
     Route: 048
  6. ADEMPAS [Suspect]
     Active Substance: RIOCIGUAT
     Indication: PULMONARY ARTERIAL HYPERTENSION
     Dosage: UNK
     Route: 048
     Dates: start: 20140925
  7. MACITENTAN [Concomitant]
     Active Substance: MACITENTAN
     Dosage: UNK
     Dates: end: 20140804
  8. WARFARIN [Concomitant]
     Active Substance: WARFARIN
  9. ADEMPAS [Suspect]
     Active Substance: RIOCIGUAT
     Indication: PULMONARY ARTERIAL HYPERTENSION
     Dosage: 0.5 MG, QD
     Dates: start: 20140710
  10. COUMADIN [Concomitant]
     Active Substance: WARFARIN SODIUM
  11. ADEMPAS [Suspect]
     Active Substance: RIOCIGUAT
     Indication: PULMONARY ARTERIAL HYPERTENSION
     Dosage: 2 MG, TID
     Route: 048
     Dates: start: 20140815
  12. REVATIO [Concomitant]
     Active Substance: SILDENAFIL CITRATE
  13. ADEMPAS [Suspect]
     Active Substance: RIOCIGUAT
     Indication: PULMONARY ARTERIAL HYPERTENSION
     Dosage: UNK UNK, TID
     Route: 048
     Dates: start: 20140508
  14. ADEMPAS [Suspect]
     Active Substance: RIOCIGUAT
     Indication: PULMONARY ARTERIAL HYPERTENSION
     Dosage: 1 MG, TID
     Route: 048
     Dates: start: 20140508

REACTIONS (36)
  - Haematochezia [None]
  - Loss of consciousness [None]
  - Abdominal pain upper [Unknown]
  - Fluid retention [None]
  - Asthenia [None]
  - Pneumonia [None]
  - Dizziness [None]
  - Weight increased [None]
  - Abdominal distension [None]
  - Constipation [None]
  - Vision blurred [None]
  - Depression [None]
  - Malaise [Unknown]
  - Pericardial effusion [None]
  - Chest pain [Unknown]
  - Dry skin [None]
  - Nausea [None]
  - Fatigue [None]
  - Dyspepsia [None]
  - Onychoclasis [None]
  - Anxiety [None]
  - Dyspnoea [Unknown]
  - Disturbance in attention [None]
  - Gastrointestinal disorder [Unknown]
  - Catheterisation cardiac [Unknown]
  - Oedema peripheral [None]
  - Abdominal pain upper [Recovering/Resolving]
  - Balance disorder [None]
  - Malaise [None]
  - Painful respiration [None]
  - Rectal haemorrhage [None]
  - Asthenia [Unknown]
  - Diagnostic procedure [None]
  - Headache [None]
  - Memory impairment [None]
  - Dizziness [None]

NARRATIVE: CASE EVENT DATE: 20140512
